FAERS Safety Report 7787489-5 (Version None)
Quarter: 2011Q3

REPORT INFORMATION
  Report Type: 
  Country: None (occurrence: None)
  Receive Date: 20110929
  Receipt Date: 20110926
  Transmission Date: 20111222
  Serious: Yes (Death)
  Sender: FDA-Public Use
  Company Number: AU-B.I. PHARMACEUTICALS,INC./RIDGEFIELD-2011-AU-01230AU

PATIENT
  Sex: Male
  Weight: 71 kg

DRUGS (3)
  1. PANAMAX [Concomitant]
  2. PRADAXA [Suspect]
     Indication: ATRIAL FIBRILLATION
     Dosage: 220 MG
     Dates: start: 20110725, end: 20110729
  3. CALCIUM CARBONATE [Concomitant]

REACTIONS (1)
  - CEREBROVASCULAR ACCIDENT [None]
